FAERS Safety Report 9954029 (Version 2)
Quarter: 2014Q1

REPORT INFORMATION
  Report Type: Spontaneous
  Country: US (occurrence: US)
  Receive Date: 20140304
  Receipt Date: 20140319
  Transmission Date: 20141002
  Serious: Yes (Death)
  Sender: FDA-Public Use
  Company Number: US-PURDUE-USA-2014-0111786

PATIENT
  Age: 65 Year
  Sex: Male
  Weight: 92.52 kg

DRUGS (1)
  1. BUTRANS [Suspect]
     Indication: PAIN
     Dosage: 20 MCG/HR, WEEKLY
     Route: 062
     Dates: start: 20130328, end: 20140127

REACTIONS (2)
  - Respiratory failure [Fatal]
  - Squamous cell carcinoma of lung [Fatal]
